FAERS Safety Report 25973584 (Version 1)
Quarter: 2025Q4

REPORT INFORMATION
  Report Type: Spontaneous
  Country: CN (occurrence: CN)
  Receive Date: 20251029
  Receipt Date: 20251029
  Transmission Date: 20260119
  Serious: Yes (Death)
  Sender: Alora Pharma
  Company Number: CN-ACELLA PHARMACEUTICALS, LLC-2025ALO02571

PATIENT
  Age: 75 Year
  Sex: Male

DRUGS (8)
  1. AMIODARONE HYDROCHLORIDE [Suspect]
     Active Substance: AMIODARONE HYDROCHLORIDE
     Indication: Wolff-Parkinson-White syndrome
     Dosage: 150 MG, ONCE; 10 MINUTE PUSH
     Route: 042
  2. AMIODARONE HYDROCHLORIDE [Suspect]
     Active Substance: AMIODARONE HYDROCHLORIDE
     Indication: Atrial flutter
     Dosage: 900 MG WITHIN 24 HOURS
     Route: 042
  3. ROSUVASTATIN [Suspect]
     Active Substance: ROSUVASTATIN
     Dosage: LONG-TERM USE
     Route: 065
  4. ROSUVASTATIN [Suspect]
     Active Substance: ROSUVASTATIN
     Dosage: 10 MG, 1X/DAY
     Route: 048
  5. ASPIRIN [Suspect]
     Active Substance: ASPIRIN
     Dosage: LONG-TERM USE
     Route: 065
  6. CYTARABINE [Concomitant]
     Active Substance: CYTARABINE
     Dosage: LONG-TERM USE
     Route: 065
  7. DONEPEZIL [Concomitant]
     Active Substance: DONEPEZIL
     Dosage: LONG-TERM USE
     Route: 065
  8. LEVAMLODIPINE [Concomitant]
     Active Substance: LEVAMLODIPINE
     Dosage: LONG-TERM USE
     Route: 065

REACTIONS (3)
  - Multiple organ dysfunction syndrome [Fatal]
  - Drug interaction [Fatal]
  - Toxicity to various agents [Fatal]
